FAERS Safety Report 12561310 (Version 2)
Quarter: 2016Q3

REPORT INFORMATION
  Report Type: Spontaneous
  Country: US (occurrence: US)
  Receive Date: 20160715
  Receipt Date: 20160809
  Transmission Date: 20161109
  Serious: Yes (Other)
  Sender: FDA-Public Use
  Company Number: US-SUNOVION-2016SUN001704

PATIENT
  Sex: Female

DRUGS (6)
  1. ZETONNA [Suspect]
     Active Substance: CICLESONIDE
     Indication: EYE PRURITUS
  2. ZETONNA [Suspect]
     Active Substance: CICLESONIDE
     Indication: LACRIMATION INCREASED
  3. ZETONNA [Suspect]
     Active Substance: CICLESONIDE
     Indication: SNEEZING
  4. SINGULAIR [Concomitant]
     Active Substance: MONTELUKAST SODIUM
     Dosage: UNK
  5. ZETONNA [Suspect]
     Active Substance: CICLESONIDE
     Indication: SEASONAL ALLERGY
     Dosage: 1 SPRAY EACH NOSTRIL QD
     Route: 045
  6. PROAIR HFA [Concomitant]
     Active Substance: ALBUTEROL SULFATE
     Indication: DYSPNOEA
     Dosage: UNK

REACTIONS (9)
  - Dyspnoea [Recovered/Resolved]
  - Palpitations [Recovered/Resolved]
  - Rash [Recovered/Resolved]
  - Dizziness [Recovered/Resolved]
  - Malaise [Recovered/Resolved]
  - Anxiety [Recovered/Resolved]
  - Seizure like phenomena [Recovered/Resolved]
  - Urticaria [Recovered/Resolved]
  - Lung disorder [Recovered/Resolved]
